FAERS Safety Report 8854454 (Version 1)
Quarter: 2012Q4

REPORT INFORMATION
  Report Type: 
  Country: US (occurrence: US)
  Receive Date: 20121023
  Receipt Date: 20121023
  Transmission Date: 20130627
  Serious: Yes (Other)
  Sender: FDA-Public Use
  Company Number: US-PFIZER INC-2012261310

PATIENT
  Age: 53 Year
  Sex: Male
  Weight: 102.04 kg

DRUGS (1)
  1. LYRICA [Suspect]
     Indication: SCIATIC NERVE INJURY
     Dosage: 75 mg, 2x/day
     Route: 048
     Dates: start: 201006

REACTIONS (1)
  - Sciatic nerve injury [Not Recovered/Not Resolved]
